FAERS Safety Report 15669526 (Version 1)
Quarter: 2018Q4

REPORT INFORMATION
  Report Type: Report from Study
  Country: JP (occurrence: JP)
  Receive Date: 20181129
  Receipt Date: 20181129
  Transmission Date: 20190205
  Serious: Yes (Hospitalization, Other)
  Sender: FDA-Public Use
  Company Number: JP-ACTELION-A-CH2018-182077

PATIENT
  Age: 82 Year
  Sex: Female
  Weight: 41.6 kg

DRUGS (14)
  1. MICARDIS [Concomitant]
     Active Substance: TELMISARTAN
  2. CARVEDILOL. [Concomitant]
     Active Substance: CARVEDILOL
  3. REVATIO [Concomitant]
     Active Substance: SILDENAFIL CITRATE
  4. SENNOSIDE [Concomitant]
     Active Substance: SENNOSIDES
  5. EPADEL [Concomitant]
     Active Substance: ICOSAPENT
  6. OPSUMIT [Suspect]
     Active Substance: MACITENTAN
     Indication: PULMONARY ARTERIAL HYPERTENSION
     Dosage: 10 MG, QD
     Route: 048
     Dates: start: 20170615
  7. BERAPROST SODIUM [Concomitant]
     Active Substance: BERAPROST SODIUM
  8. TEPRENONE [Concomitant]
     Active Substance: TEPRENONE
  9. NEXIUM [Concomitant]
     Active Substance: ESOMEPRAZOLE MAGNESIUM
  10. CELECOX [Concomitant]
     Active Substance: CELECOXIB
  11. NIFEDIPINE. [Concomitant]
     Active Substance: NIFEDIPINE
  12. AMITIZA [Concomitant]
     Active Substance: LUBIPROSTONE
  13. CILNIDIPINE [Concomitant]
     Active Substance: CILNIDIPINE
  14. BROTIZOLAM [Concomitant]
     Active Substance: BROTIZOLAM

REACTIONS (12)
  - Pneumonia staphylococcal [Recovering/Resolving]
  - Pancytopenia [Unknown]
  - Concomitant disease aggravated [Recovering/Resolving]
  - Influenza [Recovering/Resolving]
  - Transfusion [Not Recovered/Not Resolved]
  - White blood cell count decreased [Recovered/Resolved]
  - Platelet count decreased [Unknown]
  - Respiration abnormal [Recovering/Resolving]
  - Myelodysplastic syndrome [Unknown]
  - Myelofibrosis [Unknown]
  - Bronchitis [Recovering/Resolving]
  - Anaemia [Not Recovered/Not Resolved]

NARRATIVE: CASE EVENT DATE: 20170817
